FAERS Safety Report 23885057 (Version 2)
Quarter: 2024Q3

REPORT INFORMATION
  Report Type: Spontaneous
  Country: US (occurrence: US)
  Receive Date: 20240522
  Receipt Date: 20240917
  Transmission Date: 20241016
  Serious: Yes (Other)
  Sender: BAYER
  Company Number: US-BAYER-2024A070856

PATIENT
  Age: 42 Year
  Sex: Female
  Weight: 70.748 kg

DRUGS (1)
  1. MIRENA [Suspect]
     Active Substance: LEVONORGESTREL
     Indication: Contraception
     Dosage: 20?G/DAY
     Route: 015
     Dates: start: 20170104, end: 20240222

REACTIONS (4)
  - Pregnancy with contraceptive device [Recovered/Resolved]
  - Abortion spontaneous [Recovered/Resolved]
  - Embedded device [Recovered/Resolved]
  - Drug ineffective [None]

NARRATIVE: CASE EVENT DATE: 20240116
